FAERS Safety Report 16481555 (Version 2)
Quarter: 2019Q3

REPORT INFORMATION
  Report Type: Spontaneous
  Country: US (occurrence: US)
  Receive Date: 20190627
  Receipt Date: 20190920
  Transmission Date: 20191004
  Serious: No
  Sender: FDA-Public Use
  Company Number: US-009507513-1905USA013940

PATIENT

DRUGS (2)
  1. OXANDROLONE. [Suspect]
     Active Substance: OXANDROLONE
     Indication: THERMAL BURN
  2. CANCIDAS [Suspect]
     Active Substance: CASPOFUNGIN ACETATE
     Indication: THERMAL BURN

REACTIONS (1)
  - Transaminases increased [Unknown]
